FAERS Safety Report 10159028 (Version 2)
Quarter: 2014Q2

REPORT INFORMATION
  Report Type: Spontaneous
  Country: US (occurrence: US)
  Receive Date: 20140508
  Receipt Date: 20140609
  Transmission Date: 20141212
  Serious: No
  Sender: FDA-Public Use
  Company Number: US-BIOGENIDEC-2014BI040274

PATIENT
  Age: 43 Year
  Sex: Male

DRUGS (7)
  1. TECFIDERA [Suspect]
     Indication: MULTIPLE SCLEROSIS
     Route: 048
     Dates: start: 20130826
  2. ALIGN [Concomitant]
  3. CLARITIN [Concomitant]
  4. MIRALAX [Concomitant]
  5. RANITIDINE HCL [Concomitant]
  6. VITAMIN D [Concomitant]
  7. XANAX [Concomitant]

REACTIONS (1)
  - Ulcer [Not Recovered/Not Resolved]
